FAERS Safety Report 10958755 (Version 1)
Quarter: 2015Q1

REPORT INFORMATION
  Report Type: Spontaneous
  Country: US (occurrence: US)
  Receive Date: 20150326
  Receipt Date: 20150326
  Transmission Date: 20150721
  Serious: No
  Sender: FDA-Public Use
  Company Number: US-BAYER-2015-060543

PATIENT
  Age: 25 Year
  Sex: Female

DRUGS (2)
  1. SAFYRAL [Suspect]
     Active Substance: DROSPIRENONE\ETHINYL ESTRADIOL\LEVOMEFOLATE CALCIUM
     Indication: ENDOMETRIOSIS
     Dosage: UNK
     Dates: start: 201501
  2. SAFYRAL [Suspect]
     Active Substance: DROSPIRENONE\ETHINYL ESTRADIOL\LEVOMEFOLATE CALCIUM
     Indication: MENSTRUATION IRREGULAR

REACTIONS (4)
  - Off label use [None]
  - Paraesthesia [None]
  - Muscular weakness [None]
  - Hypoaesthesia [None]

NARRATIVE: CASE EVENT DATE: 2015
